FAERS Safety Report 5786275-5 (Version None)
Quarter: 2008Q2

REPORT INFORMATION
  Report Type: 
  Country: None (occurrence: None)
  Receive Date: 20080624
  Receipt Date: 20070716
  Transmission Date: 20081010
  Serious: No
  Sender: FDA-Public Use
  Company Number: US-ASTRAZENECA-2007UW16808

PATIENT
  Age: 59 Year
  Sex: Female
  Weight: 49.9 kg

DRUGS (5)
  1. PULMICORT-100 [Suspect]
     Indication: ASTHMA
     Route: 055
     Dates: start: 20070510, end: 20070715
  2. CLARITIN [Concomitant]
  3. RELPAX [Concomitant]
  4. VITAMIN B-12 [Concomitant]
  5. MAGNESIUM [Concomitant]

REACTIONS (1)
  - HYPERTENSION [None]
